FAERS Safety Report 5347835-9 (Version None)
Quarter: 2007Q2

REPORT INFORMATION
  Report Type: 
  Country: None (occurrence: None)
  Receive Date: 20070606
  Receipt Date: 20070525
  Transmission Date: 20071010
  Serious: Yes (Other)
  Sender: FDA-Public Use
  Company Number: GB-ROCHE-494353

PATIENT
  Age: 38 Year
  Sex: Female
  Weight: 70 kg

DRUGS (3)
  1. ROACCUTANE [Suspect]
     Indication: ACNE
     Route: 048
     Dates: start: 20070416
  2. FLUOXETINE [Concomitant]
  3. BETA BLOCKER NOS [Concomitant]

REACTIONS (6)
  - DYSPNOEA [None]
  - HEARING IMPAIRED [None]
  - HYPERHIDROSIS [None]
  - NAUSEA [None]
  - PHARYNGOLARYNGEAL PAIN [None]
  - TENSION HEADACHE [None]
